FAERS Safety Report 4515080-2 (Version None)
Quarter: 2004Q4

REPORT INFORMATION
  Report Type: 
  Country: None (occurrence: None)
  Receive Date: 20041201
  Receipt Date: 20041121
  Transmission Date: 20050328
  Serious: Yes (Hospitalization)
  Sender: FDA-Public Use
  Company Number: US-AMGEN-US100647

PATIENT
  Age: 63 Year
  Sex: Female
  Weight: 40.9 kg

DRUGS (11)
  1. PROCRIT [Suspect]
     Indication: MYELODYSPLASTIC SYNDROME
     Route: 058
     Dates: start: 19920101
  2. PREDNISONE [Concomitant]
  3. INDERAL LA [Concomitant]
  4. DIFLUCAN [Concomitant]
  5. CIPRO [Concomitant]
  6. ESTRADIOL [Concomitant]
  7. PROGESTERONE [Concomitant]
  8. FOLIC ACID [Concomitant]
  9. VITAMIN B-12 [Concomitant]
  10. SYNTHROID [Concomitant]
  11. ACIDOPHILUS [Concomitant]

REACTIONS (9)
  - CONVULSION [None]
  - FATIGUE [None]
  - KNEE OPERATION [None]
  - LIVER FUNCTION TEST ABNORMAL [None]
  - LOSS OF CONSCIOUSNESS [None]
  - MIGRAINE [None]
  - PYREXIA [None]
  - VASCULITIS [None]
  - VASCULITIS GASTROINTESTINAL [None]
